FAERS Safety Report 8797494 (Version 1)
Quarter: 2012Q4

REPORT INFORMATION
  Report Type: 
  Country: BR (occurrence: BR)
  Receive Date: 20120920
  Receipt Date: 20120920
  Transmission Date: 20130627
  Serious: Yes (Other)
  Sender: FDA-Public Use
  Company Number: PHHY2012BR079709

PATIENT
  Age: 65 Year
  Sex: Male

DRUGS (3)
  1. RASILEZ AMLO [Suspect]
     Dosage: 1 DF (150 mg aliskiren/ 5mg amlodipine) daily, QD
  2. METFORMIN [Concomitant]
     Dosage: 1 DF, BID
  3. ROSUVASTATIN [Concomitant]
     Dosage: 20 mg, daily

REACTIONS (9)
  - Arterial spasm [Recovering/Resolving]
  - Arterial disorder [Recovering/Resolving]
  - Aneurysm arteriovenous [Recovering/Resolving]
  - Glycosylated haemoglobin increased [Recovering/Resolving]
  - High density lipoprotein decreased [Recovering/Resolving]
  - Blood urea increased [Recovering/Resolving]
  - Blood cholesterol increased [Recovering/Resolving]
  - Blood triglycerides increased [Recovering/Resolving]
  - Blood glucose increased [Recovering/Resolving]
